FAERS Safety Report 23099403 (Version 2)
Quarter: 2023Q4

REPORT INFORMATION
  Report Type: Spontaneous
  Country: DE (occurrence: DE)
  Receive Date: 20231024
  Receipt Date: 20231114
  Transmission Date: 20240109
  Serious: Yes (Life-Threatening, Hospitalization, Other)
  Sender: FDA-Public Use
  Company Number: DE-PFIZER INC-PV202200112575

PATIENT
  Age: 60 Year
  Sex: Male

DRUGS (9)
  1. BEVACIZUMAB [Suspect]
     Active Substance: BEVACIZUMAB
     Indication: Gastric antral vascular ectasia
     Dosage: 7.5 MG/KG, BODY WEIGHT, CYCLIC
     Route: 065
  2. BEVACIZUMAB [Suspect]
     Active Substance: BEVACIZUMAB
     Indication: Upper gastrointestinal haemorrhage
     Dosage: UNK, CYCLIC, 9 INFUSIONS
     Route: 065
  3. EPINEPHRINE [Suspect]
     Active Substance: EPINEPHRINE
     Indication: Upper gastrointestinal haemorrhage
     Dosage: UNK
     Route: 065
  4. OCTREOTIDE ACETATE [Suspect]
     Active Substance: OCTREOTIDE ACETATE
     Indication: Gastric antral vascular ectasia
     Dosage: 600 MICROGRAM, QD,200 UG, 3X/DAY
     Route: 058
  5. OCTREOTIDE ACETATE [Suspect]
     Active Substance: OCTREOTIDE ACETATE
     Indication: Upper gastrointestinal haemorrhage
     Dosage: 1000 UG, DAILY (400-200-400 UG)
     Route: 058
  6. FIBRINOGEN [Suspect]
     Active Substance: FIBRINOGEN HUMAN
     Indication: Upper gastrointestinal haemorrhage
     Dosage: UNK
     Route: 065
  7. PROTHROMBIN COMPLEX CONCENTRATE NOS [Suspect]
     Active Substance: COAGULATION FACTOR IX HUMAN\COAGULATION FACTOR VII HUMAN\COAGULATION FACTOR X HUMAN\PROTHROMBIN
     Indication: Upper gastrointestinal haemorrhage
     Dosage: UNK
     Route: 065
  8. FACTOR XIII CONCENTRATE (HUMAN) [Suspect]
     Active Substance: FACTOR XIII CONCENTRATE (HUMAN)
     Indication: Upper gastrointestinal haemorrhage
     Dosage: UNK
     Route: 065
  9. ETHINYL ESTRADIOL\NORETHINDRONE [Suspect]
     Active Substance: ETHINYL ESTRADIOL\NORETHINDRONE
     Indication: Upper gastrointestinal haemorrhage
     Dosage: 0.02 MG/0.5 MG/DAY
     Route: 065

REACTIONS (4)
  - Fatigue [Unknown]
  - Dyspnoea [Unknown]
  - Drug ineffective [Unknown]
  - Off label use [Unknown]
